FAERS Safety Report 4508636-4 (Version None)
Quarter: 2004Q4

REPORT INFORMATION
  Report Type: 
  Country: None (occurrence: None)
  Receive Date: 20041123
  Receipt Date: 19971107
  Transmission Date: 20050328
  Serious: No
  Sender: FDA-Public Use
  Company Number: US-GLAXOSMITHKLINE-A0056952A

PATIENT
  Age: 70 Year
  Sex: Female

DRUGS (7)
  1. WELLBUTRIN [Suspect]
     Indication: DEPRESSION
     Dosage: 150MG PER DAY
     Route: 048
     Dates: start: 19971011, end: 19971021
  2. ELAVIL [Concomitant]
  3. ZOLOFT [Concomitant]
  4. PAXIL [Concomitant]
  5. PEPCID [Concomitant]
  6. ANTACID TAB [Concomitant]
  7. TYLENOL [Concomitant]

REACTIONS (4)
  - ANXIETY [None]
  - BRUXISM [None]
  - FEELING JITTERY [None]
  - NERVOUSNESS [None]
